FAERS Safety Report 20123229 (Version 2)
Quarter: 2021Q4

REPORT INFORMATION
  Report Type: Spontaneous
  Country: US (occurrence: US)
  Receive Date: 20211129
  Receipt Date: 20211224
  Transmission Date: 20220303
  Serious: No
  Sender: FDA-Public Use
  Company Number: US-GSKCCFUS-Case-01228451_AE-72004

PATIENT
  Sex: Male

DRUGS (1)
  1. FLOVENT HFA [Suspect]
     Active Substance: FLUTICASONE PROPIONATE
     Indication: Product used for unknown indication
     Dosage: 1 PUFF(S), BID 220MCG
     Route: 055

REACTIONS (4)
  - Extra dose administered [Unknown]
  - Overdose [Unknown]
  - Wrong technique in product usage process [Unknown]
  - Product complaint [Unknown]
